FAERS Safety Report 7473061-3 (Version None)
Quarter: 2011Q2

REPORT INFORMATION
  Report Type: 
  Country: None (occurrence: None)
  Receive Date: 20110511
  Receipt Date: 20110430
  Transmission Date: 20111010
  Serious: Yes (Hospitalization, Other)
  Sender: FDA-Public Use
  Company Number: CA-ELI_LILLY_AND_COMPANY-CA201102006774

PATIENT
  Sex: Male

DRUGS (2)
  1. VERAPAMIL [Concomitant]
     Indication: MIGRAINE
  2. CYMBALTA [Suspect]
     Indication: MAJOR DEPRESSION

REACTIONS (2)
  - SUPRAVENTRICULAR TACHYCARDIA [None]
  - WITHDRAWAL SYNDROME [None]
